FAERS Safety Report 23491864 (Version 3)
Quarter: 2025Q1

REPORT INFORMATION
  Report Type: Report from Study
  Country: US (occurrence: US)
  Receive Date: 20240207
  Receipt Date: 20250130
  Transmission Date: 20250408
  Serious: No
  Sender: HRA PHARMA
  Company Number: US-ORG100014127-2023001072

PATIENT
  Age: 64 Year
  Sex: Female

DRUGS (32)
  1. LYSODREN [Suspect]
     Active Substance: MITOTANE
     Indication: Adrenal gland cancer
     Route: 048
     Dates: start: 20231107
  2. METOPIRONE [Suspect]
     Active Substance: METYRAPONE
     Indication: Cushing^s syndrome
     Dosage: 1 CAPSULE EVERY 8 HOURS
     Dates: start: 20240119
  3. AMLODIPINE [Concomitant]
     Active Substance: AMLODIPINE BESYLATE
     Indication: Product used for unknown indication
  4. ATORVASTATIN TAB 80MG [Concomitant]
     Indication: Product used for unknown indication
  5. BENICAR TAB 5MG [Concomitant]
     Indication: Product used for unknown indication
  6. HYDROCORT TAB 5MG [Concomitant]
     Indication: Product used for unknown indication
  7. JARDIANCE TAB 25MG [Concomitant]
     Indication: Product used for unknown indication
  8. METFORMIN TAB 1000 ER [Concomitant]
     Indication: Product used for unknown indication
  9. METOPROLOL SUCCINATE [Concomitant]
     Active Substance: METOPROLOL SUCCINATE
     Indication: Product used for unknown indication
  10. NUVIGIL TAB 150MG [Concomitant]
     Indication: Product used for unknown indication
  11. ZIPSOR CAP 25MG [Concomitant]
     Indication: Product used for unknown indication
  12. alprazolam tablet 0.25mg [Concomitant]
     Indication: Product used for unknown indication
  13. Aspirin tablet 81mg EC [Concomitant]
     Indication: Product used for unknown indication
  14. carvedilil tablet 25mg [Concomitant]
     Indication: Product used for unknown indication
  15. clonidine tablet 0.1mg [Concomitant]
     Indication: Product used for unknown indication
  16. FUROSEMIDE [Concomitant]
     Active Substance: FUROSEMIDE
     Indication: Product used for unknown indication
  17. ipratropium solution albuterol [Concomitant]
     Indication: Product used for unknown indication
  18. klor-con M20 tablet 20MEQ ER [Concomitant]
     Indication: Product used for unknown indication
  19. Levalbuterol aer 45/ACT [Concomitant]
     Indication: Product used for unknown indication
  20. levothyroxin capsule 50mcg [Concomitant]
     Indication: Product used for unknown indication
  21. losartan potassium tablet 100mg [Concomitant]
     Indication: Product used for unknown indication
  22. magnesium capsule 400mg [Concomitant]
     Indication: Product used for unknown indication
  23. nifedipine tablet 60mg ER [Concomitant]
     Indication: Product used for unknown indication
  24. olanzapine tablet 5mg [Concomitant]
     Indication: Product used for unknown indication
  25. ondansetron tablet 8mg [Concomitant]
     Indication: Product used for unknown indication
  26. polyethylene liquid gly 400 [Concomitant]
     Indication: Product used for unknown indication
  27. prochloperazine tablet 10mg [Concomitant]
     Indication: Product used for unknown indication
  28. senna-tabs tablet 8.6mg [Concomitant]
     Indication: Product used for unknown indication
  29. spironolactone tablet 100mg [Concomitant]
     Indication: Product used for unknown indication
  30. vascepa capsule 1GM [Concomitant]
     Indication: Product used for unknown indication
  31. Vitamin C tablet 1000mg [Concomitant]
     Indication: Product used for unknown indication
  32. vitamin D3 tablet 1000unit [Concomitant]
     Indication: Product used for unknown indication

REACTIONS (2)
  - Brain fog [Unknown]
  - Off label use [Not Recovered/Not Resolved]
